FAERS Safety Report 9612924 (Version 1)
Quarter: 2013Q4

REPORT INFORMATION
  Report Type: Spontaneous
  Country: US (occurrence: US)
  Receive Date: 20131010
  Receipt Date: 20131010
  Transmission Date: 20140711
  Serious: Yes (Other)
  Sender: FDA-Public Use
  Company Number: US-ELI_LILLY_AND_COMPANY-US201310002573

PATIENT
  Sex: Male

DRUGS (8)
  1. HUMALOG LISPRO [Suspect]
     Indication: TYPE 2 DIABETES MELLITUS
     Dosage: 2 U, UNK
  2. DIABETA                            /00145301/ [Concomitant]
  3. LIPTOR [Concomitant]
  4. METOPROLOL [Concomitant]
  5. LASIX                              /00032601/ [Concomitant]
  6. FINASTERIDE [Concomitant]
  7. DOXAZOSIN [Concomitant]
  8. LEVOTHYROXINE [Concomitant]

REACTIONS (2)
  - Blindness [Not Recovered/Not Resolved]
  - Deafness unilateral [Not Recovered/Not Resolved]
